FAERS Safety Report 16400630 (Version 1)
Quarter: 2019Q2

REPORT INFORMATION
  Report Type: Spontaneous
  Country: US (occurrence: US)
  Receive Date: 20190606
  Receipt Date: 20190606
  Transmission Date: 20190711
  Serious: Yes (Hospitalization, Other)
  Sender: FDA-Public Use
  Company Number: US-TEVA-2019-US-1059295

PATIENT
  Age: 30 Year
  Sex: Female

DRUGS (17)
  1. CYCLOPHOSPHAMIDE. [Suspect]
     Active Substance: CYCLOPHOSPHAMIDE
     Indication: METASTATIC CHORIOCARCINOMA
     Dosage: THE WOMAN RECEIVED IV CYCLOPHOSPHAMIDE 600MG/M*2 OVER 30MINUTES ON DAY 8 OF CYCLE,
     Route: 042
  2. VINCRISTINE [Suspect]
     Active Substance: VINCRISTINE
     Indication: METASTATIC CHORIOCARCINOMA
     Dosage: AFTER A 1- WEEK DELAY, SHE COMPLETED TWO ADDITIONAL COURSES.
     Route: 065
  3. CISPLATIN. [Suspect]
     Active Substance: CISPLATIN
     Indication: METASTATIC CHORIOCARCINOMA
     Dosage: THE WOMAN RECEIVED A SECOND COURSE OF ETOPOSIDE AND CISPLATIN (ROUTES AND DOSAGES NOT STATED)
     Route: 065
  4. DACTINOMYCIN [Suspect]
     Active Substance: DACTINOMYCIN
     Indication: METASTATIC CHORIOCARCINOMA
     Dosage: THE WOMAN RECEIVED IV BOLUS DACTINOMYCIN 0.5MG ON DAY 1 OF CYCLE, ALTERNATING WEEKLY.
     Route: 040
  5. CYCLOPHOSPHAMIDE. [Suspect]
     Active Substance: CYCLOPHOSPHAMIDE
     Indication: METASTATIC CHORIOCARCINOMA
     Dosage: AFTER A 1- WEEK DELAY, SHE COMPLETED TWO ADDITIONAL COURSES.
     Route: 065
  6. ETOPOSIDE. [Suspect]
     Active Substance: ETOPOSIDE
     Indication: METASTATIC CHORIOCARCINOMA
     Dosage: THE WOMAN RECEIVED ETOPOSIDE 100MG/M*2 OVER 30 MINUTES ON DAY 1 OF CYCLE, ALTERNATING WEEKLY.
     Route: 042
  7. ETOPOSIDE. [Suspect]
     Active Substance: ETOPOSIDE
     Indication: METASTATIC CHORIOCARCINOMA
     Dosage: AFTER A 1- WEEK DELAY, SHE COMPLETED TWO ADDITIONAL COURSES.
     Route: 065
  8. METHOTREXATE. [Suspect]
     Active Substance: METHOTREXATE
     Indication: METASTATIC CHORIOCARCINOMA
     Dosage: AFTER A 1- WEEK DELAY, SHE COMPLETED TWO ADDITIONAL COURSES.
     Route: 065
  9. DACTINOMYCIN [Suspect]
     Active Substance: DACTINOMYCIN
     Indication: METASTATIC CHORIOCARCINOMA
     Dosage: AFTER A 1- WEEK DELAY, SHE COMPLETED TWO ADDITIONAL COURSES.
     Route: 065
  10. ETOPOSIDE. [Suspect]
     Active Substance: ETOPOSIDE
     Indication: METASTATIC CHORIOCARCINOMA
     Dosage: THE WOMAN RECEIVED ETOPOSIDE ALONG WITH CISPLATIN ON DAYS 1 AND 2 OF CYCLE
     Route: 042
  11. ETOPOSIDE. [Suspect]
     Active Substance: ETOPOSIDE
     Indication: METASTATIC CHORIOCARCINOMA
     Dosage: THE WOMAN RECEIVED A SECOND COURSE OF ETOPOSIDE AND CISPLATIN (ROUTES AND DOSAGES NOT STATED)
     Route: 065
  12. CISPLATIN. [Suspect]
     Active Substance: CISPLATIN
     Indication: METASTATIC CHORIOCARCINOMA
     Dosage: THE WOMAN RECEIVED ETOPOSIDE ALONG WITH ETOPOSIDE ON DAYS 1 AND 2 OF CYCLE
     Route: 065
  13. METHOTREXATE. [Suspect]
     Active Substance: METHOTREXATE
     Indication: METASTATIC CHORIOCARCINOMA
     Dosage: THE WOMAN RECEIVED METHOTREXATE 300MG/M*2 OVER 12HOURS ON DAY 1 OF CYCLE, ALTERNATING WEEKLY.
     Route: 042
  14. ETOPOSIDE. [Suspect]
     Active Substance: ETOPOSIDE
     Indication: METASTATIC CHORIOCARCINOMA
     Dosage: THE WOMAN RECEIVED ETOPOSIDE ON DAY 2 (ROUTES AND DOSAGES NOT STATED)
     Route: 065
  15. DACTINOMYCIN [Suspect]
     Active Substance: DACTINOMYCIN
     Indication: METASTATIC CHORIOCARCINOMA
     Dosage: THE WOMAN RECEIVED DACTINOMYCIN ALONG WITH ETOPOSIDE AND FOLINIC ACID RESCUE ON DAY 2 OF CYCLE,
     Route: 065
  16. FOLINIC ACID [Suspect]
     Active Substance: LEUCOVORIN
     Indication: METASTATIC CHORIOCARCINOMA
     Route: 065
  17. VINCRISTINE [Suspect]
     Active Substance: VINCRISTINE
     Indication: METASTATIC CHORIOCARCINOMA
     Dosage: THE WOMAN RECEIVED IV VINCRISTINE 1MG/M*2 ON DAY 8 OF CYCLE, ALTERNATING WEEKLY.
     Route: 040

REACTIONS (4)
  - Neutropenia [Unknown]
  - Menopausal symptoms [Unknown]
  - Febrile neutropenia [Unknown]
  - Amenorrhoea [Unknown]
